FAERS Safety Report 9668775 (Version 3)
Quarter: 2013Q4

REPORT INFORMATION
  Report Type: Spontaneous
  Country: JP (occurrence: JP)
  Receive Date: 20131105
  Receipt Date: 20131112
  Transmission Date: 20140711
  Serious: Yes (Other)
  Sender: FDA-Public Use
  Company Number: JP-UCBSA-101927

PATIENT
  Age: 24 Year
  Sex: Male

DRUGS (2)
  1. E KEPPRA [Suspect]
     Indication: PARTIAL SEIZURES
     Dosage: UNKNOWN DOSE
     Route: 048
  2. CLONAZEPAM [Concomitant]
     Indication: PARTIAL SEIZURES

REACTIONS (2)
  - Epilepsy [Recovered/Resolved]
  - Drug ineffective [Unknown]
